FAERS Safety Report 5016322-X (Version None)
Quarter: 2006Q2

REPORT INFORMATION
  Report Type: 
  Country: None (occurrence: None)
  Receive Date: 20060526
  Receipt Date: 20060514
  Transmission Date: 20061013
  Serious: Yes (Disabling)
  Sender: FDA-Public Use
  Company Number: GB200603006464

PATIENT
  Age: 45 Year
  Sex: Female
  Weight: 65 kg

DRUGS (6)
  1. GEMCITABINE HYDROCHLORIDE( GEMCITABINE HYDROCHLORIDE) VIAL [Suspect]
     Indication: BREAST CANCER
     Dosage: 2000 MG/M2, INTRAVENOUS; 1000 MG/M2 INTRAVENOUS
     Route: 042
  2. PACLITAXEL [Suspect]
  3. ONDANSETRON [Concomitant]
  4. DOMPERIDONE (DOMPERIDONE) [Concomitant]
  5. CIPROFLOXACIN [Concomitant]
  6. FLUCONAZOLE [Concomitant]

REACTIONS (1)
  - KERATOPATHY [None]
